FAERS Safety Report 5518840-4 (Version None)
Quarter: 2007Q4

REPORT INFORMATION
  Report Type: 
  Country: None (occurrence: None)
  Receive Date: 20071115
  Receipt Date: 20071113
  Transmission Date: 20080405
  Serious: Yes (Life-Threatening, Hospitalization, Other)
  Sender: FDA-Public Use
  Company Number: US-GILEAD-2007-0014345

PATIENT
  Sex: Female
  Weight: 53.572 kg

DRUGS (8)
  1. TRUVADA [Suspect]
     Indication: HIV INFECTION
     Dosage: 300/200
     Route: 048
     Dates: start: 20071020, end: 20071020
  2. TRUVADA [Suspect]
     Route: 048
     Dates: start: 20071003, end: 20071015
  3. ATAZANAVIR SULFATE [Suspect]
     Indication: HIV INFECTION
     Route: 048
     Dates: start: 20071020, end: 20071020
  4. ATAZANAVIR SULFATE [Suspect]
     Route: 048
     Dates: start: 20071003, end: 20071015
  5. RITONAVIR [Suspect]
     Indication: HIV INFECTION
     Route: 048
     Dates: start: 20071020, end: 20071020
  6. RITONAVIR [Suspect]
     Route: 048
     Dates: start: 20071003, end: 20071015
  7. BACTRIM DS [Suspect]
     Indication: ANTIFUNGAL PROPHYLAXIS
     Route: 048
     Dates: start: 20070918, end: 20071011
  8. ACYCLOVIR [Concomitant]
     Route: 048
     Dates: start: 20071010

REACTIONS (2)
  - CARDIOPULMONARY FAILURE [None]
  - HYPERSENSITIVITY [None]
